FAERS Safety Report 9198741 (Version 3)
Quarter: 2013Q2

REPORT INFORMATION
  Report Type: Spontaneous
  Country: JP (occurrence: JP)
  Receive Date: 20130329
  Receipt Date: 20130509
  Transmission Date: 20140414
  Serious: Yes (Life-Threatening, Hospitalization, Other)
  Sender: FDA-Public Use
  Company Number: JP-PFIZER INC-2013089242

PATIENT
  Age: 81 Year
  Sex: Female
  Weight: 38.5 kg

DRUGS (11)
  1. LYRICA [Suspect]
     Indication: CERVICAL MYELOPATHY
     Dosage: 25 MG, 1X/DAY
     Route: 048
     Dates: start: 20130214
  2. LYRICA [Suspect]
     Dosage: 50 MG, 1X/DAY
     Route: 048
     Dates: start: 20130314
  3. BAYASPIRIN [Suspect]
     Dosage: 100 MG, 1X/DAY
     Route: 048
     Dates: start: 201202
  4. PLATEMEEL [Suspect]
     Dosage: 50 MG, 1X/DAY
     Route: 048
     Dates: start: 201202
  5. PRORENAL [Suspect]
     Dosage: 5 UG, 2X/DAY
     Route: 048
     Dates: start: 201202
  6. THYRADIN S [Concomitant]
     Dosage: 100 UG, 1X/DAY
     Route: 048
     Dates: start: 201202
  7. CALFINA [Concomitant]
     Dosage: 0.25 UG, 1X/DAY
     Route: 048
     Dates: start: 201202
  8. PRECIPITATED CALCIUM CARBONATE [Concomitant]
     Dosage: 1 G, 3X/DAY
     Route: 048
     Dates: start: 201202
  9. TEOFURMATE L [Concomitant]
     Dosage: 200 MG, 1X/DAY
     Route: 048
     Dates: start: 201202
  10. ANTOBRON [Concomitant]
     Dosage: 1 DF, 3X/DAY
     Route: 048
     Dates: start: 201202
  11. NESP [Concomitant]
     Dosage: 40 UG, ONCE WEEKLY AFTER DIALYSIS
     Route: 042
     Dates: start: 20130124

REACTIONS (4)
  - Gastric antral vascular ectasia [Recovering/Resolving]
  - Gastrointestinal haemorrhage [Recovering/Resolving]
  - Cardiac failure congestive [Recovering/Resolving]
  - Oedema [Recovering/Resolving]
